FAERS Safety Report 25973841 (Version 1)
Quarter: 2025Q4

REPORT INFORMATION
  Report Type: Report from Study
  Country: PK (occurrence: PK)
  Receive Date: 20251029
  Receipt Date: 20251029
  Transmission Date: 20260117
  Serious: Yes (Death, Other)
  Sender: ROCHE
  Company Number: PK-ROCHE-10000420258

PATIENT
  Age: 57 Year
  Sex: Male

DRUGS (1)
  1. AVASTIN [Suspect]
     Active Substance: BEVACIZUMAB
     Indication: Colorectal cancer metastatic
     Route: 042
     Dates: start: 20250523

REACTIONS (5)
  - Hepatic failure [Fatal]
  - Disease progression [Unknown]
  - Abdominal pain [Unknown]
  - Asthenia [Unknown]
  - Ascites [Unknown]

NARRATIVE: CASE EVENT DATE: 20251003
